FAERS Safety Report 6700806-X (Version None)
Quarter: 2010Q2

REPORT INFORMATION
  Report Type: 
  Country: None (occurrence: None)
  Receive Date: 20100428
  Receipt Date: 20100419
  Transmission Date: 20101027
  Serious: Yes (Other)
  Sender: FDA-Public Use
  Company Number: GB-AMGEN-US407659

PATIENT
  Sex: Female

DRUGS (5)
  1. ENBREL [Suspect]
     Indication: RHEUMATOID ARTHRITIS
     Route: 058
     Dates: start: 20070101
  2. METHOTREXATE [Concomitant]
     Dosage: UNKNOWN
     Route: 065
  3. ASPIRIN [Concomitant]
     Dosage: UNKNOWN
     Route: 065
  4. MOBIC [Concomitant]
     Dosage: UNKNOWN
     Route: 065
  5. AMITRIPTYLINE [Concomitant]
     Dosage: UNKNOWN
     Route: 065

REACTIONS (1)
  - MYASTHENIA GRAVIS [None]
